FAERS Safety Report 6751372-4 (Version None)
Quarter: 2010Q2

REPORT INFORMATION
  Report Type: 
  Country: None (occurrence: None)
  Receive Date: 20100528
  Receipt Date: 20100518
  Transmission Date: 20101027
  Serious: Yes (Death)
  Sender: FDA-Public Use
  Company Number: 1000014043

PATIENT
  Age: 82 Year
  Sex: Male

DRUGS (6)
  1. MEMANTINE HCL [Suspect]
     Indication: DRUG ADMINISTRATION ERROR
     Dosage: 5 MG (5 MG, 1 IN 1 D) ,ORAL
     Route: 048
     Dates: start: 20100103, end: 20100103
  2. SERESTA (TABLETS) [Suspect]
     Indication: DRUG ADMINISTRATION ERROR
     Dosage: 50 MG  (50 MG 1 IN 1  D) , ORAL
     Route: 048
     Dates: start: 20100103, end: 20100103
  3. EQUANIL [Suspect]
     Indication: DRUG ADMINISTRATION ERROR
     Dosage: 100 MG  (100 MG 1 IN 1  D) , ORAL
     Route: 048
     Dates: start: 20100103, end: 20100103
  4. ZYPREXA [Suspect]
     Indication: DRUG ADMINISTRATION ERROR
     Dosage: 10 MG  (10 MG 1 IN 1  D) , ORAL
     Route: 048
     Dates: start: 20100103, end: 20100103
  5. ATHYMIL (TABLETS) [Suspect]
     Indication: DRUG ADMINISTRATION ERROR
     Dosage: 30 MG  (30 MG 1 IN 1  D) , ORAL
     Route: 048
     Dates: start: 20100103, end: 20100103
  6. ASPEGIC 1000 [Concomitant]

REACTIONS (7)
  - ALTERED STATE OF CONSCIOUSNESS [None]
  - HYPERNATRAEMIA [None]
  - MIOSIS [None]
  - PNEUMONIA ASPIRATION [None]
  - PNEUMONIA BACTERIAL [None]
  - SUDDEN DEATH [None]
  - WRONG DRUG ADMINISTERED [None]
